FAERS Safety Report 9146886 (Version 1)
Quarter: 2013Q1

REPORT INFORMATION
  Report Type: Report from Study
  Country: PL (occurrence: PL)
  Receive Date: 20130307
  Receipt Date: 20130307
  Transmission Date: 20140127
  Serious: Yes (Other)
  Sender: FDA-Public Use
  Company Number: PL-ROCHE-1092509

PATIENT
  Age: 61 Year
  Sex: Female
  Weight: 68 kg

DRUGS (20)
  1. ROACTEMRA [Suspect]
     Indication: INFLAMMATION
     Route: 065
     Dates: start: 20110810, end: 20120518
  2. ROACTEMRA [Suspect]
     Route: 065
     Dates: start: 20110810
  3. ROACTEMRA [Suspect]
     Route: 065
     Dates: start: 20110909
  4. ROACTEMRA [Suspect]
     Route: 065
     Dates: start: 20111121
  5. ROACTEMRA [Suspect]
     Route: 065
     Dates: start: 20111216
  6. ROACTEMRA [Suspect]
     Route: 065
     Dates: start: 20120120
  7. ROACTEMRA [Suspect]
     Route: 065
     Dates: start: 20120314
  8. ROACTEMRA [Suspect]
     Route: 065
     Dates: start: 20120420
  9. METHOTREXATE [Concomitant]
     Indication: INFLAMMATION
     Route: 065
     Dates: start: 20110810
  10. METHOTREXATE [Concomitant]
     Route: 065
     Dates: start: 20110909
  11. METHOTREXATE [Concomitant]
     Route: 065
     Dates: start: 20111121
  12. METHOTREXATE [Concomitant]
     Route: 065
     Dates: start: 20111216
  13. METHOTREXATE [Concomitant]
     Route: 065
     Dates: start: 20120120
  14. PREDNISONE [Concomitant]
     Indication: INFLAMMATION
     Dosage: DRUG REPORTED AS ENCORTON
     Route: 065
     Dates: start: 20110810
  15. PREDNISONE [Concomitant]
     Route: 065
     Dates: start: 20110909
  16. PREDNISONE [Concomitant]
     Route: 065
     Dates: start: 20111121
  17. PREDNISONE [Concomitant]
     Route: 065
     Dates: start: 20111216
  18. PREDNISONE [Concomitant]
     Route: 065
     Dates: start: 20120120
  19. PREDNISONE [Concomitant]
     Route: 065
     Dates: start: 20120314
  20. PREDNISONE [Concomitant]
     Route: 065
     Dates: start: 20120420

REACTIONS (5)
  - Erythema [Unknown]
  - Erythema [Unknown]
  - Cough [Unknown]
  - Alanine aminotransferase increased [Unknown]
  - Aspartate aminotransferase increased [Unknown]
